FAERS Safety Report 15330064 (Version 1)
Quarter: 2018Q3

REPORT INFORMATION
  Report Type: Spontaneous
  Country: US (occurrence: US)
  Receive Date: 20180824
  Receipt Date: 20180824
  Transmission Date: 20181010
  Serious: Yes (Other)
  Sender: FDA-Public Use
  Company Number: None

PATIENT
  Age: 71 Year
  Sex: Male
  Weight: 110.25 kg

DRUGS (14)
  1. NICOTINE 21MG/24HR PATCH [Concomitant]
  2. NICOTINE POLACRILEX 2MG LOZENGE [Concomitant]
  3. ENALAPRIL MALEATE 20MG [Concomitant]
  4. METOPROLOL TARTRATE 25MG TAB [Concomitant]
  5. PREDNISONE 20MG TAB [Concomitant]
  6. ALBUTEROL 90MCG [Concomitant]
  7. INSULIN,ASPART,HUMAN 100 UNIT/ML INJ INJECT 15 UNITS [Concomitant]
  8. GABAPENTIN 300MG CAP [Concomitant]
     Active Substance: GABAPENTIN
  9. EPCLUSA [Suspect]
     Active Substance: SOFOSBUVIR\VELPATASVIR
  10. CHOLECALCIFEROL (VIT D3) 2,000UNIT [Concomitant]
  11. GLUCOSE 4GM CHEW TAB [Concomitant]
  12. OMEPRAZOLE 20MG EC CAP [Concomitant]
  13. FISH OIL 1000MG CAP [Concomitant]
  14. ATORVASTATIN CALCIUM 40MG [Concomitant]

REACTIONS (3)
  - Hydronephrosis [None]
  - Haematuria [None]
  - Bladder cancer [None]

NARRATIVE: CASE EVENT DATE: 20180611
